FAERS Safety Report 5584103-4 (Version None)
Quarter: 2008Q1

REPORT INFORMATION
  Report Type: 
  Country: None (occurrence: None)
  Receive Date: 20080108
  Receipt Date: 20071228
  Transmission Date: 20080703
  Serious: Yes (Life-Threatening)
  Sender: FDA-Public Use
  Company Number: JP-BRISTOL-MYERS SQUIBB COMPANY-14010425

PATIENT
  Age: 51 Year
  Sex: Male

DRUGS (7)
  1. ABILIFY [Suspect]
     Indication: SCHIZOPHRENIA
     Dosage: 12MG-6SEP07 TO 31OCT07,INCREASED TO 18MG ON 1-NOV-07,DECREASED TO 12MG ON 15NOV07. LAST DOSE-27NOV07
     Route: 048
     Dates: start: 20071101, end: 20071114
  2. VALPROATE SODIUM [Concomitant]
     Indication: RESTLESSNESS
     Route: 048
     Dates: start: 20060522
  3. NITRAZEPAM [Concomitant]
     Indication: INSOMNIA
     Route: 048
     Dates: start: 20060522
  4. ZOPICLONE [Concomitant]
     Indication: INSOMNIA
     Route: 048
     Dates: start: 20060522
  5. CLOXAZOLAM [Concomitant]
     Indication: RESTLESSNESS
     Route: 048
     Dates: start: 20060522
  6. TRIHEXYPHENIDYL HCL [Concomitant]
     Indication: PARKINSON'S DISEASE
     Route: 048
     Dates: start: 20060522
  7. TEPRENONE [Concomitant]
     Indication: GASTRITIS
     Route: 048
     Dates: start: 20060522

REACTIONS (3)
  - ALTERED STATE OF CONSCIOUSNESS [None]
  - RESPIRATORY FAILURE [None]
  - UNRESPONSIVE TO STIMULI [None]
